FAERS Safety Report 8005302-8 (Version None)
Quarter: 2011Q4

REPORT INFORMATION
  Report Type: 
  Country: None (occurrence: None)
  Receive Date: 20111223
  Receipt Date: 20111216
  Transmission Date: 20120403
  Serious: Yes (Other)
  Sender: FDA-Public Use
  Company Number: US-JNJFOC-20111208270

PATIENT
  Sex: Female

DRUGS (13)
  1. POTASSIUM CHLORIDE [Concomitant]
     Indication: PRODUCT USED FOR UNKNOWN INDICATION
     Route: 048
  2. GABAPENTIN [Concomitant]
     Indication: NEUROPATHY PERIPHERAL
     Dosage: THREE 600 MG PER DAY
     Route: 048
  3. NADOLOL [Concomitant]
     Route: 048
  4. FENTANYL-100 [Suspect]
     Indication: NEUROPATHY PERIPHERAL
     Dosage: NDC-0781-7241-55
     Route: 062
     Dates: start: 20110901
  5. XANAX [Concomitant]
     Indication: ANXIETY
     Route: 048
  6. LIDOCAINE [Concomitant]
     Indication: PAIN
     Route: 062
  7. AMLODIPINE [Concomitant]
     Indication: HYPERTENSION
     Route: 048
  8. PREVACID [Concomitant]
     Indication: GASTRIC DISORDER
     Route: 048
  9. CLONAZEPAM [Concomitant]
     Dosage: HALF OF 0.5 MG AT NIGHT
     Route: 048
  10. ZANTAC [Concomitant]
     Indication: GASTRIC DISORDER
     Route: 048
  11. OMEPRAZOLE [Concomitant]
     Indication: GASTRIC DISORDER
     Dosage: BEFORE EVERY MEAL
     Route: 048
  12. CITALOPRAM [Concomitant]
     Route: 048
  13. COZAAR [Concomitant]
     Route: 048

REACTIONS (3)
  - GASTROINTESTINAL INFECTION [None]
  - DRUG INEFFECTIVE [None]
  - WRONG TECHNIQUE IN DRUG USAGE PROCESS [None]
